FAERS Safety Report 20875904 (Version 1)
Quarter: 2022Q2

REPORT INFORMATION
  Report Type: Spontaneous
  Country: GB (occurrence: GB)
  Receive Date: 20220526
  Receipt Date: 20220526
  Transmission Date: 20220721
  Serious: Yes (Disabling, Other)
  Sender: FDA-Public Use
  Company Number: GB-BAUSCH-BL-2022-012867

PATIENT
  Age: 29 Year
  Sex: Female
  Weight: 48 kg

DRUGS (3)
  1. HYDROCORTISONE [Suspect]
     Active Substance: HYDROCORTISONE
     Indication: Eczema
     Dosage: 2 X 1 DOSAGE FORM IN 1 DAY, APPLIED TO FACE AND EYELIDS
     Route: 061
     Dates: start: 20210118, end: 20210204
  2. EUMOVATE [Suspect]
     Active Substance: CLOBETASONE BUTYRATE
     Indication: Eczema
     Dosage: 2 X 1 DOSAGE FORM IN 1 DAY; DOSAGE INFORMATION: APPLIED TO NECK, CHEST AND ARMS
     Route: 061
     Dates: start: 20210118, end: 20210205
  3. MOMETASONE FUROATE [Suspect]
     Active Substance: MOMETASONE FUROATE
     Indication: Eczema
     Dosage: TOOK FOR 5 DAYS INITIALLY AND THEN ATTEMPTED TO WEAN OFF BY REDUCING DOSAGE UNTIL STOP 9TH OF APRIL
     Route: 061
     Dates: start: 20210211, end: 20210409

REACTIONS (5)
  - Insomnia [Unknown]
  - Depression [Unknown]
  - Topical steroid withdrawal reaction [Not Recovered/Not Resolved]
  - Temperature regulation disorder [Unknown]
  - Inappropriate schedule of product discontinuation [Unknown]

NARRATIVE: CASE EVENT DATE: 20210409
